FAERS Safety Report 8136622-4 (Version None)
Quarter: 2012Q1

REPORT INFORMATION
  Report Type: 
  Country: None (occurrence: None)
  Receive Date: 20120214
  Receipt Date: 20120202
  Transmission Date: 20120608
  Serious: Yes (Death, Other)
  Sender: FDA-Public Use
  Company Number: US-ELI_LILLY_AND_COMPANY-US201202001245

PATIENT
  Age: 25 Year
  Sex: Female

DRUGS (3)
  1. FLEXERIL [Concomitant]
  2. ZYPREXA [Suspect]
  3. XANAX [Concomitant]

REACTIONS (6)
  - UNRESPONSIVE TO STIMULI [None]
  - OVERDOSE [None]
  - DRUG DEPENDENCE [None]
  - DEATH [None]
  - DEPRESSION [None]
  - FALL [None]
